FAERS Safety Report 8523014-9 (Version None)
Quarter: 2012Q3

REPORT INFORMATION
  Report Type: 
  Country: None (occurrence: None)
  Receive Date: 20120720
  Receipt Date: 20120711
  Transmission Date: 20120928
  Serious: Yes (Other)
  Sender: FDA-Public Use
  Company Number: US-RB-042338-12

PATIENT
  Age: 13 Year
  Sex: Male
  Weight: 52 kg

DRUGS (1)
  1. MUCINEX DM [Suspect]
     Indication: DRUG ABUSE
     Route: 048

REACTIONS (6)
  - HALLUCINATION [None]
  - SWELLING [None]
  - DRUG ABUSE [None]
  - OVERDOSE [None]
  - HEART RATE INCREASED [None]
  - VOMITING [None]
